FAERS Safety Report 8738402 (Version 4)
Quarter: 2013Q2

REPORT INFORMATION
  Report Type: Spontaneous
  Country: US (occurrence: US)
  Receive Date: 20120823
  Receipt Date: 20130507
  Transmission Date: 20140414
  Serious: Yes (Hospitalization, Disabling, Other)
  Sender: FDA-Public Use
  Company Number: US-009507513-1208USA005571

PATIENT
  Sex: Female
  Weight: 72.11 kg

DRUGS (4)
  1. FOSAMAX [Suspect]
     Indication: OSTEOPOROSIS
     Dosage: 10 MG, UNK
     Route: 048
  2. FOSAMAX [Suspect]
     Dosage: 70 MG, UNK
     Route: 048
     Dates: start: 20030101, end: 20080307
  3. FOSAMAX [Suspect]
     Dosage: 70 MG, UNK
     Route: 048
  4. ZOCOR [Concomitant]
     Indication: BLOOD CHOLESTEROL INCREASED
     Dosage: UNK
     Route: 048
     Dates: start: 1995, end: 2012

REACTIONS (25)
  - Intramedullary rod insertion [Unknown]
  - Bone density decreased [Unknown]
  - Osteoporosis [Unknown]
  - Stress fracture [Unknown]
  - Femur fracture [Unknown]
  - Rotator cuff repair [Unknown]
  - Knee arthroplasty [Unknown]
  - Pancreatitis [Unknown]
  - Femur fracture [Recovered/Resolved]
  - Device breakage [Unknown]
  - Bursitis [Unknown]
  - Rib fracture [Unknown]
  - Osteoarthritis [Unknown]
  - Arthritis [Recovering/Resolving]
  - Sinusitis [Unknown]
  - Rotator cuff syndrome [Unknown]
  - Pneumonia [Unknown]
  - Sinusitis [Unknown]
  - Fall [Unknown]
  - Haematoma [Unknown]
  - Dyslipidaemia [Unknown]
  - Spinal osteoarthritis [Unknown]
  - Hypothyroidism [Unknown]
  - Anxiety [Unknown]
  - Headache [Unknown]
